FAERS Safety Report 10383275 (Version 2)
Quarter: 2014Q3

REPORT INFORMATION
  Report Type: Spontaneous
  Country: JP (occurrence: JP)
  Receive Date: 20140814
  Receipt Date: 20140902
  Transmission Date: 20150326
  Serious: Yes (Hospitalization, Other)
  Sender: FDA-Public Use
  Company Number: JP-AMGEN-JPNSP2014061447

PATIENT
  Age: 66 Year
  Sex: Female
  Weight: 37 kg

DRUGS (11)
  1. PRALIA [Suspect]
     Active Substance: DENOSUMAB
     Indication: COMPRESSION FRACTURE
     Dosage: 60 MG, UNK
     Route: 058
     Dates: start: 20140520
  2. DIBASIC POTASSIUM PHOSPHATE [Concomitant]
     Dosage: 20 MEQ, BID
     Route: 042
     Dates: start: 20140707, end: 20140714
  3. MAGNESOL                           /00434501/ [Concomitant]
     Dosage: 20 ML, QD
     Route: 042
     Dates: start: 20140707, end: 20140707
  4. PAPAVERINE [Concomitant]
     Active Substance: PAPAVERINE
     Indication: SHOCK
     Dosage: 400 MG, BID
     Route: 042
     Dates: start: 20140705, end: 20140705
  5. PREDOPA                            /00360702/ [Concomitant]
     Indication: SHOCK
     Dosage: 600 MG, QD
     Route: 042
     Dates: start: 20140705, end: 20140705
  6. MEROPENEM. [Concomitant]
     Active Substance: MEROPENEM
     Indication: SEPSIS
     Dosage: 1 G, TID
     Route: 042
     Dates: start: 20140704, end: 20140709
  7. FENTANYL. [Concomitant]
     Active Substance: FENTANYL
     Indication: SEDATION
     Dosage: 0.5 MG, UNK
     Route: 042
     Dates: start: 20140705, end: 20140705
  8. NOREPINEPHRINE [Concomitant]
     Active Substance: NOREPINEPHRINE\NOREPINEPHRINE BITARTRATE
     Indication: SHOCK
     Dosage: CONTINUATION
     Route: 042
     Dates: start: 20140704, end: 20140707
  9. HORIZON [Concomitant]
     Active Substance: DIAZEPAM
     Indication: CONVULSION
     Dosage: 5 MG, UNK
     Route: 042
     Dates: start: 20140705, end: 20140707
  10. SOLU-CORTEF [Concomitant]
     Active Substance: HYDROCORTISONE SODIUM SUCCINATE
     Indication: SHOCK
     Dosage: 50 MG, TID
     Route: 042
     Dates: start: 20140705, end: 20140708
  11. POTASSIUM CHLORIDE. [Concomitant]
     Active Substance: POTASSIUM CHLORIDE
     Dosage: 20 MEQ, BID
     Route: 042
     Dates: start: 20140707, end: 20140708

REACTIONS (3)
  - Septic shock [Unknown]
  - Haematochezia [Unknown]
  - Hypocalcaemia [Recovered/Resolved]

NARRATIVE: CASE EVENT DATE: 20140615
